FAERS Safety Report 17158606 (Version 1)
Quarter: 2019Q4

REPORT INFORMATION
  Report Type: Spontaneous
  Country: CA (occurrence: CA)
  Receive Date: 20191216
  Receipt Date: 20191216
  Transmission Date: 20200122
  Serious: Yes (Hospitalization, Other)
  Sender: FDA-Public Use
  Company Number: CA-PFIZER INC-2019537027

PATIENT
  Age: 59 Year
  Sex: Female

DRUGS (122)
  1. FLUDARABINE PHOSPHATE. [Suspect]
     Active Substance: FLUDARABINE PHOSPHATE
     Dosage: 25 MG/M2, UNK
     Route: 042
  2. ACETAMINOPHEN. [Concomitant]
     Active Substance: ACETAMINOPHEN
     Dosage: 650 MG, UNK
     Route: 048
  3. AMOXICILLIN AND CLAVULANATE POTASSIUM [Concomitant]
     Active Substance: AMOXICILLIN\CLAVULANATE POTASSIUM
     Dosage: UNK
  4. CIPRO [Concomitant]
     Active Substance: CIPROFLOXACIN HYDROCHLORIDE
     Dosage: 500 MG, 1X/DAY
     Route: 048
  5. DEMEROL [Concomitant]
     Active Substance: MEPERIDINE HYDROCHLORIDE
     Dosage: 50 MG, UNK [TOTAL]
     Route: 042
  6. DEMEROL [Concomitant]
     Active Substance: MEPERIDINE HYDROCHLORIDE
     Dosage: UNK
     Route: 042
  7. DEXAMETHASONE. [Concomitant]
     Active Substance: DEXAMETHASONE
     Dosage: 20 MG, UNK
     Route: 042
  8. FILGRASTIM [Suspect]
     Active Substance: FILGRASTIM
     Dosage: 300 UG, 1X/DAY
     Route: 058
  9. FLUDARABINE [Suspect]
     Active Substance: FLUDARABINE PHOSPHATE
     Dosage: 25 MG/M2, UNK
     Route: 042
  10. OBINUTUZUMAB. [Suspect]
     Active Substance: OBINUTUZUMAB
     Dosage: 25 MG, UNK
     Route: 042
  11. OBINUTUZUMAB. [Suspect]
     Active Substance: OBINUTUZUMAB
     Dosage: 1000 MG, 1X/DAY
     Route: 042
  12. OBINUTUZUMAB. [Suspect]
     Active Substance: OBINUTUZUMAB
     Dosage: 25 MG, UNK
     Route: 042
  13. OBINUTUZUMAB. [Suspect]
     Active Substance: OBINUTUZUMAB
     Dosage: UNK
     Route: 042
  14. PROCYTOX [Suspect]
     Active Substance: CYCLOPHOSPHAMIDE
     Indication: CHRONIC LYMPHOCYTIC LEUKAEMIA
     Dosage: 250 MG/M2, UNK
     Route: 042
  15. PROCYTOX [Suspect]
     Active Substance: CYCLOPHOSPHAMIDE
     Dosage: 250 MG/M2, 1X/DAY
     Route: 042
  16. PROCYTOX [Suspect]
     Active Substance: CYCLOPHOSPHAMIDE
     Dosage: 250 MG/M2, UNK
     Route: 042
  17. ACETAMINOPHEN. [Concomitant]
     Active Substance: ACETAMINOPHEN
     Indication: FEBRILE NEUTROPENIA
     Dosage: 650 MG, UNK
     Route: 048
  18. ACETAMINOPHEN. [Concomitant]
     Active Substance: ACETAMINOPHEN
     Dosage: UNK
     Route: 048
  19. ALLOPURINOL. [Concomitant]
     Active Substance: ALLOPURINOL
     Dosage: 300 MG, UNK
     Route: 048
  20. NEULASTA [Concomitant]
     Active Substance: PEGFILGRASTIM
     Dosage: 6 MG, UNK
  21. NEULASTA [Concomitant]
     Active Substance: PEGFILGRASTIM
     Dosage: 6 MG, UNK
  22. PIPERACILLIN SODIUM/TAZOBACTAM SODIUM [Concomitant]
     Active Substance: PIPERACILLIN SODIUM\TAZOBACTAM SODIUM
     Indication: FEBRILE NEUTROPENIA
     Dosage: 4.5 MG, 3X/DAY
     Route: 042
  23. FLUDARABINE PHOSPHATE. [Suspect]
     Active Substance: FLUDARABINE PHOSPHATE
     Indication: CHRONIC LYMPHOCYTIC LEUKAEMIA
     Dosage: 25 MG/M2, UNK
     Route: 042
  24. CYCLOPHOSPHAMIDE. [Suspect]
     Active Substance: CYCLOPHOSPHAMIDE
     Dosage: 250 MG/M2, 1X/DAY
     Route: 042
  25. CYCLOPHOSPHAMIDE. [Suspect]
     Active Substance: CYCLOPHOSPHAMIDE
     Dosage: 250 MG/M2, UNK
     Route: 042
  26. FLUDARABINE [Suspect]
     Active Substance: FLUDARABINE PHOSPHATE
     Dosage: 25 MG/M2, UNK
     Route: 042
  27. OBINUTUZUMAB. [Suspect]
     Active Substance: OBINUTUZUMAB
     Dosage: 25 MG, 1X/DAY
     Route: 042
  28. OBINUTUZUMAB. [Suspect]
     Active Substance: OBINUTUZUMAB
     Dosage: 975 MG, UNK
     Route: 042
  29. OBINUTUZUMAB. [Suspect]
     Active Substance: OBINUTUZUMAB
     Dosage: 25 MG, UNK
     Route: 042
  30. OBINUTUZUMAB. [Suspect]
     Active Substance: OBINUTUZUMAB
     Dosage: 975 MG, UNK
     Route: 042
  31. PROCYTOX [Suspect]
     Active Substance: CYCLOPHOSPHAMIDE
     Dosage: 250 MG/M2, UNK
     Route: 042
  32. PROCYTOX [Suspect]
     Active Substance: CYCLOPHOSPHAMIDE
     Dosage: UNK
     Route: 042
  33. ACYCLOVIR [ACICLOVIR] [Concomitant]
     Active Substance: ACYCLOVIR
     Dosage: 400 MG, UNK
     Route: 048
  34. ACYCLOVIR [ACICLOVIR] [Concomitant]
     Active Substance: ACYCLOVIR
     Dosage: 400 MG, 2X/DAY
     Route: 048
  35. AVAMYS [Concomitant]
     Active Substance: FLUTICASONE FUROATE
     Dosage: UNK
  36. CALCIUM CARBONATE. [Concomitant]
     Active Substance: CALCIUM CARBONATE
     Dosage: 1250 MG, 3X/DAY
     Route: 048
  37. CIPRO [Concomitant]
     Active Substance: CIPROFLOXACIN HYDROCHLORIDE
     Indication: PROPHYLAXIS
     Dosage: 750 MG, 2X/DAY
     Route: 048
  38. DEMEROL [Concomitant]
     Active Substance: MEPERIDINE HYDROCHLORIDE
     Dosage: 50 MG, UNK
     Route: 042
  39. FUROSEMIDE SODIUM [Concomitant]
     Active Substance: FUROSEMIDE SODIUM
     Dosage: 20 MG, UNK
     Route: 042
  40. NEULASTA [Concomitant]
     Active Substance: PEGFILGRASTIM
     Dosage: 6 MG, UNK
     Route: 058
  41. PIPERACILLIN SODIUM/TAZOBACTAM SODIUM [Concomitant]
     Active Substance: PIPERACILLIN SODIUM\TAZOBACTAM SODIUM
     Indication: INFLUENZA
     Dosage: 4.5 MG, 3X/DAY
     Route: 042
  42. SEPTRA [Concomitant]
     Active Substance: SULFAMETHOXAZOLE\TRIMETHOPRIM
     Dosage: UNK
     Route: 065
  43. CYCLOPHOSPHAMIDE. [Suspect]
     Active Substance: CYCLOPHOSPHAMIDE
     Dosage: 250 MG/M2, UNK
     Route: 065
  44. FILGRASTIM [Suspect]
     Active Substance: FILGRASTIM
     Dosage: 300 MG, UNK
     Route: 065
  45. FLUDARABINE [Suspect]
     Active Substance: FLUDARABINE PHOSPHATE
     Dosage: 25 MG/M2, UNK
     Route: 042
  46. OBINUTUZUMAB. [Suspect]
     Active Substance: OBINUTUZUMAB
     Dosage: 1000 MG, 1X/DAY
     Route: 042
  47. OBINUTUZUMAB. [Suspect]
     Active Substance: OBINUTUZUMAB
     Dosage: UNK
     Route: 042
  48. PROCYTOX [Suspect]
     Active Substance: CYCLOPHOSPHAMIDE
     Dosage: 250 MG/M2, UNK
     Route: 042
  49. PROCYTOX [Suspect]
     Active Substance: CYCLOPHOSPHAMIDE
     Dosage: 250 MG/M2, UNK
     Route: 042
  50. PROCYTOX [Suspect]
     Active Substance: CYCLOPHOSPHAMIDE
     Dosage: 250 MG/M2, 1X/DAY
     Route: 042
  51. PROCYTOX [Suspect]
     Active Substance: CYCLOPHOSPHAMIDE
     Dosage: 250 MG/M2, UNK
     Route: 042
  52. PROCYTOX [Suspect]
     Active Substance: CYCLOPHOSPHAMIDE
     Dosage: UNK
     Route: 042
  53. ACETAMINOPHEN. [Concomitant]
     Active Substance: ACETAMINOPHEN
     Dosage: 650 MG, UNK
     Route: 048
  54. ALLOPURINOL. [Concomitant]
     Active Substance: ALLOPURINOL
     Dosage: 300 MG, 1X/DAY
     Route: 048
  55. AMOXICILLIN AND CLAVULANATE POTASSIUM [Concomitant]
     Active Substance: AMOXICILLIN\CLAVULANATE POTASSIUM
     Dosage: UNK
     Route: 065
  56. CEFTAZIDIME. [Concomitant]
     Active Substance: CEFTAZIDIME
     Indication: FEBRILE NEUTROPENIA
     Dosage: 20 ML, UNK
  57. CEFTAZIDIME. [Concomitant]
     Active Substance: CEFTAZIDIME
     Dosage: UNK
     Route: 042
  58. DEXAMETHASONE. [Concomitant]
     Active Substance: DEXAMETHASONE
     Dosage: 20 MG, UNK
     Route: 042
  59. DIPHENHYDRAMINE. [Concomitant]
     Active Substance: DIPHENHYDRAMINE
     Dosage: UNK
  60. FUROSEMIDE SODIUM [Concomitant]
     Active Substance: FUROSEMIDE SODIUM
     Dosage: 20 MG, UNK [TOTAL]
     Route: 042
  61. MONTELUKAST [Concomitant]
     Active Substance: MONTELUKAST SODIUM
     Dosage: 10 MG, UNK
     Route: 048
  62. NEULASTA [Concomitant]
     Active Substance: PEGFILGRASTIM
     Dosage: 6 MG, UNK
  63. NEULASTA [Concomitant]
     Active Substance: PEGFILGRASTIM
     Dosage: 6 MG, UNK
  64. RED BLOOD CELLS [Concomitant]
     Active Substance: HUMAN RED BLOOD CELL
     Dosage: 2 DF, UNK [TOTAL]
     Route: 042
  65. FLUDARABINE PHOSPHATE. [Suspect]
     Active Substance: FLUDARABINE PHOSPHATE
     Dosage: 25 MG/M2, UNK
     Route: 042
  66. FILGRASTIM [Suspect]
     Active Substance: FILGRASTIM
     Dosage: 300 UG, 1X/DAY
     Route: 042
  67. FLUDARABINE [Suspect]
     Active Substance: FLUDARABINE PHOSPHATE
     Dosage: 25 MG/M2, UNK
     Route: 042
  68. OBINUTUZUMAB. [Suspect]
     Active Substance: OBINUTUZUMAB
     Dosage: 1000 MG, 1X/DAY
     Route: 042
  69. OBINUTUZUMAB. [Suspect]
     Active Substance: OBINUTUZUMAB
     Dosage: 1000 MG, 1X/DAY
     Route: 042
  70. PROCYTOX [Suspect]
     Active Substance: CYCLOPHOSPHAMIDE
     Dosage: 250 MG/M2, UNK
     Route: 042
  71. ALLOPURINOL. [Concomitant]
     Active Substance: ALLOPURINOL
     Dosage: UNK
     Route: 048
  72. CALCIUM CARBONATE. [Concomitant]
     Active Substance: CALCIUM CARBONATE
     Dosage: 1250 MG, 3X/DAY
     Route: 048
  73. CALCIUM CARBONATE. [Concomitant]
     Active Substance: CALCIUM CARBONATE
     Dosage: UNK
     Route: 048
  74. CIPRO [Concomitant]
     Active Substance: CIPROFLOXACIN HYDROCHLORIDE
     Dosage: 500 ML, 1X/DAY
     Route: 048
  75. CODEINE [Concomitant]
     Active Substance: CODEINE
     Indication: INFLUENZA
     Dosage: 30 MG, UNK
     Route: 048
  76. DEMEROL [Concomitant]
     Active Substance: MEPERIDINE HYDROCHLORIDE
     Dosage: 50 MG, UNK
     Route: 042
  77. DEXAMETHASONE. [Concomitant]
     Active Substance: DEXAMETHASONE
     Dosage: UNK
     Route: 048
  78. DEXAMETHASONE. [Concomitant]
     Active Substance: DEXAMETHASONE
     Dosage: UNK
     Route: 042
  79. DEXAMETHASONE. [Concomitant]
     Active Substance: DEXAMETHASONE
     Dosage: UNK
     Route: 042
  80. RED BLOOD CELLS [Concomitant]
     Active Substance: HUMAN RED BLOOD CELL
     Dosage: UNK
     Route: 042
  81. SEPTRA [Concomitant]
     Active Substance: SULFAMETHOXAZOLE\TRIMETHOPRIM
     Dosage: UNK
     Route: 048
  82. SULFAMETHOXAZOLE/TRIMETHOPRIM [Concomitant]
     Active Substance: SULFAMETHOXAZOLE\TRIMETHOPRIM
     Dosage: UNK
     Route: 048
  83. FLUDARABINE PHOSPHATE. [Suspect]
     Active Substance: FLUDARABINE PHOSPHATE
     Dosage: 25 MG/M2, UNK
     Route: 042
  84. FLUDARABINE PHOSPHATE. [Suspect]
     Active Substance: FLUDARABINE PHOSPHATE
     Dosage: 25 MG/M2, UNK
     Route: 042
  85. CYCLOPHOSPHAMIDE. [Suspect]
     Active Substance: CYCLOPHOSPHAMIDE
     Indication: CHRONIC LYMPHOCYTIC LEUKAEMIA
     Dosage: 250 MG/M2, UNK
     Route: 042
  86. CYCLOPHOSPHAMIDE. [Suspect]
     Active Substance: CYCLOPHOSPHAMIDE
     Dosage: 250 MG/M2, UNK
     Route: 065
  87. FLUDARABINE [Suspect]
     Active Substance: FLUDARABINE PHOSPHATE
     Indication: CHRONIC LYMPHOCYTIC LEUKAEMIA
     Dosage: 25 MG/M2, UNK
     Route: 042
  88. FLUDARABINE [Suspect]
     Active Substance: FLUDARABINE PHOSPHATE
     Dosage: 25 MG/M2, UNK
     Route: 042
  89. FLUDARABINE [Suspect]
     Active Substance: FLUDARABINE PHOSPHATE
     Dosage: 25 MG/M2, UNK
     Route: 042
  90. OBINUTUZUMAB. [Suspect]
     Active Substance: OBINUTUZUMAB
     Indication: CHRONIC LYMPHOCYTIC LEUKAEMIA
     Dosage: 1000 MG, 1X/DAY
     Route: 042
  91. OBINUTUZUMAB. [Suspect]
     Active Substance: OBINUTUZUMAB
     Dosage: 1000 MG, UNK
     Route: 042
  92. ACETAMINOPHEN. [Concomitant]
     Active Substance: ACETAMINOPHEN
     Dosage: UNK
  93. ALLOPURINOL. [Concomitant]
     Active Substance: ALLOPURINOL
     Dosage: 300 MG, 1X/DAY
     Route: 048
  94. AVAMYS [Concomitant]
     Active Substance: FLUTICASONE FUROATE
     Dosage: UNK
     Route: 045
  95. CALCIUM CARBONATE. [Concomitant]
     Active Substance: CALCIUM CARBONATE
     Dosage: 3750 MG, 3X/DAY
     Route: 048
  96. CIPRO [Concomitant]
     Active Substance: CIPROFLOXACIN HYDROCHLORIDE
     Dosage: 750 ML, 2X/DAY
     Route: 048
  97. DEXAMETHASONE. [Concomitant]
     Active Substance: DEXAMETHASONE
     Dosage: 8 MG, UNK
     Route: 048
  98. FILGRASTIM [Suspect]
     Active Substance: FILGRASTIM
     Dosage: 300 MG, UNK
     Route: 065
  99. OBINUTUZUMAB. [Suspect]
     Active Substance: OBINUTUZUMAB
     Dosage: 1000 MG, 1X/DAY
     Route: 042
  100. OBINUTUZUMAB. [Suspect]
     Active Substance: OBINUTUZUMAB
     Dosage: 975 MG, UNK
     Route: 042
  101. OBINUTUZUMAB. [Suspect]
     Active Substance: OBINUTUZUMAB
     Dosage: 975 MG, UNK
     Route: 042
  102. AVAMYS [Concomitant]
     Active Substance: FLUTICASONE FUROATE
     Dosage: UNK
     Route: 045
  103. DEXAMETHASONE. [Concomitant]
     Active Substance: DEXAMETHASONE
     Dosage: 20 MG, UNK
     Route: 042
  104. DEXAMETHASONE. [Concomitant]
     Active Substance: DEXAMETHASONE
     Dosage: 20 MG, UNK (TOTAL)
     Route: 042
  105. PIPERACILLIN SODIUM/TAZOBACTAM SODIUM [Concomitant]
     Active Substance: PIPERACILLIN SODIUM\TAZOBACTAM SODIUM
     Dosage: 4.5 MG, 3X/DAY
     Route: 042
  106. RED BLOOD CELLS [Concomitant]
     Active Substance: HUMAN RED BLOOD CELL
     Dosage: 2 DF, UNK
     Route: 042
  107. RED BLOOD CELLS [Concomitant]
     Active Substance: HUMAN RED BLOOD CELL
     Dosage: UNK
  108. FLUDARABINE PHOSPHATE. [Suspect]
     Active Substance: FLUDARABINE PHOSPHATE
     Dosage: 25 MG/M2, UNK
     Route: 042
  109. CYCLOPHOSPHAMIDE. [Suspect]
     Active Substance: CYCLOPHOSPHAMIDE
     Dosage: 250 MG/M2, UNK
     Route: 065
  110. FILGRASTIM [Suspect]
     Active Substance: FILGRASTIM
     Dosage: 300 UG, 1X/DAY
     Route: 058
  111. FILGRASTIM [Suspect]
     Active Substance: FILGRASTIM
     Dosage: UNK, 1X/DAY
     Route: 058
  112. FLUDARABINE [Suspect]
     Active Substance: FLUDARABINE PHOSPHATE
     Dosage: 25 MG/M2, UNK
     Route: 042
  113. PROCYTOX [Suspect]
     Active Substance: CYCLOPHOSPHAMIDE
     Dosage: UNK
     Route: 042
  114. ACETAMINOPHEN. [Concomitant]
     Active Substance: ACETAMINOPHEN
     Indication: INFLUENZA
     Dosage: 650 MG, UNK
     Route: 048
  115. ACYCLOVIR [ACICLOVIR] [Concomitant]
     Active Substance: ACYCLOVIR
     Dosage: UNK
     Route: 048
  116. ACYCLOVIR [ACICLOVIR] [Concomitant]
     Active Substance: ACYCLOVIR
     Dosage: 400 MG, 2X/DAY
     Route: 048
  117. AMOXICILLIN/CLAVULANATE POTASSIUM [Concomitant]
     Active Substance: AMOXICILLIN\CLAVULANATE POTASSIUM
     Indication: FEBRILE NEUTROPENIA
     Dosage: 865 MG, 2X/DAY
     Route: 048
  118. FUROSEMIDE SODIUM [Concomitant]
     Active Substance: FUROSEMIDE SODIUM
     Dosage: 20 MG, UNK
     Route: 042
  119. FUROSEMIDE SODIUM [Concomitant]
     Active Substance: FUROSEMIDE SODIUM
     Dosage: UNK
     Route: 042
  120. MONTELUKAST [Concomitant]
     Active Substance: MONTELUKAST SODIUM
     Dosage: 10 MG, UNK
     Route: 048
  121. MONTELUKAST [Concomitant]
     Active Substance: MONTELUKAST SODIUM
     Dosage: UNK
     Route: 048
  122. SEPTRA [Concomitant]
     Active Substance: SULFAMETHOXAZOLE\TRIMETHOPRIM
     Dosage: UNK

REACTIONS (2)
  - Influenza [Recovered/Resolved]
  - Febrile neutropenia [Recovered/Resolved]
